FAERS Safety Report 9223945 (Version 2)
Quarter: 2013Q2

REPORT INFORMATION
  Report Type: Spontaneous
  Country: US (occurrence: US)
  Receive Date: 20130411
  Receipt Date: 20130510
  Transmission Date: 20140414
  Serious: Yes (Other)
  Sender: FDA-Public Use
  Company Number: US-BIOGENIDEC-2013BI030682

PATIENT
  Age: 20 Year
  Sex: Female
  Weight: 83 kg

DRUGS (10)
  1. TYSABRI [Suspect]
     Indication: MULTIPLE SCLEROSIS
     Route: 042
     Dates: start: 20130124
  2. PAXIL [Concomitant]
     Route: 048
  3. PAXIL [Concomitant]
     Route: 048
  4. TOPOMAX [Concomitant]
     Route: 048
  5. ALEVE [Concomitant]
     Indication: HEADACHE
  6. LUNESTA [Concomitant]
  7. TRAZODONE [Concomitant]
  8. CLONAZAPAM [Concomitant]
  9. BUTALBITAL [Concomitant]
  10. ACETAMINOPHEN [Concomitant]

REACTIONS (2)
  - Hepatic enzyme increased [Recovered/Resolved]
  - Liver injury [Recovered/Resolved]
